FAERS Safety Report 9242770 (Version 1)
Quarter: 2013Q2

REPORT INFORMATION
  Report Type: Spontaneous
  Country: SK (occurrence: SK)
  Receive Date: 20130419
  Receipt Date: 20130419
  Transmission Date: 20140414
  Serious: Yes (Hospitalization)
  Sender: FDA-Public Use
  Company Number: SK-ABBOTT-13P-260-1077033-00

PATIENT
  Age: 62 Year
  Sex: Female

DRUGS (1)
  1. HUMIRA [Suspect]
     Indication: RHEUMATOID ARTHRITIS
     Route: 058
     Dates: start: 201112, end: 201211

REACTIONS (4)
  - Acute abdomen [Recovering/Resolving]
  - Atrioventricular block [Unknown]
  - Inguinal hernia [Unknown]
  - Lymphoma [Recovering/Resolving]
